FAERS Safety Report 5721565-3 (Version None)
Quarter: 2008Q2

REPORT INFORMATION
  Report Type: 
  Country: None (occurrence: None)
  Receive Date: 20080429
  Receipt Date: 20070319
  Transmission Date: 20081010
  Serious: No
  Sender: FDA-Public Use
  Company Number: US-ASTRAZENECA-2007UW05397

PATIENT
  Sex: Female

DRUGS (2)
  1. NEXIUM [Suspect]
     Indication: GASTROOESOPHAGEAL REFLUX DISEASE
     Route: 048
     Dates: start: 20060201, end: 20070201
  2. NEXIUM [Suspect]
     Route: 048
     Dates: start: 20070201

REACTIONS (2)
  - DIARRHOEA [None]
  - DYSPHONIA [None]
